FAERS Safety Report 26117738 (Version 2)
Quarter: 2025Q4

REPORT INFORMATION
  Report Type: Spontaneous
  Country: IR (occurrence: IR)
  Receive Date: 20251203
  Receipt Date: 20251208
  Transmission Date: 20260117
  Serious: Yes (Death, Hospitalization, Other)
  Sender: SANOFI AVENTIS
  Company Number: IR-SA-2025SA361852

PATIENT
  Age: 2 Year
  Sex: Female

DRUGS (1)
  1. MYOZYME [Suspect]
     Active Substance: ALGLUCOSIDASE ALFA
     Dosage: 20 MG/KG, QOW
     Dates: end: 20251125

REACTIONS (2)
  - Respiratory distress [Fatal]
  - Cardiac failure [Fatal]
